FAERS Safety Report 23549078 (Version 1)
Quarter: 2024Q1

REPORT INFORMATION
  Report Type: Report from Study
  Country: GB (occurrence: GB)
  Receive Date: 20240221
  Receipt Date: 20240221
  Transmission Date: 20240409
  Serious: Yes (Other)
  Sender: FDA-Public Use
  Company Number: GB-TAKEDA-2024TUS015263

PATIENT
  Age: 30 Year
  Sex: Female
  Weight: 57 kg

DRUGS (4)
  1. ICATIBANT [Suspect]
     Active Substance: ICATIBANT ACETATE
     Indication: Hereditary angioedema
     Dosage: 60 MILLIGRAM
     Route: 042
     Dates: start: 20151023
  2. ICATIBANT [Suspect]
     Active Substance: ICATIBANT ACETATE
     Indication: Hereditary angioedema
     Dosage: 60 MILLIGRAM
     Route: 042
     Dates: start: 20151023
  3. CINRYZE [Concomitant]
     Active Substance: HUMAN C1-ESTERASE INHIBITOR
     Indication: Hereditary angioedema
     Dosage: 1500 MILLIGRAM
     Route: 042
     Dates: start: 20121009
  4. TRANEXAMIC ACID [Concomitant]
     Active Substance: TRANEXAMIC ACID
     Indication: Hereditary angioedema
     Dosage: 3 GRAM, QD
     Route: 048
     Dates: start: 20130724

REACTIONS (2)
  - Abortion spontaneous [Recovered/Resolved]
  - Pregnancy [Recovered/Resolved]

NARRATIVE: CASE EVENT DATE: 20190907
